FAERS Safety Report 7416329-9 (Version None)
Quarter: 2011Q2

REPORT INFORMATION
  Report Type: 
  Country: None (occurrence: None)
  Receive Date: 20110414
  Receipt Date: 20110331
  Transmission Date: 20111010
  Serious: Yes (Hospitalization)
  Sender: FDA-Public Use
  Company Number: US-CELGENEUS-163-21880-11030601

PATIENT
  Sex: Male

DRUGS (5)
  1. DEXAMETHASONE [Concomitant]
     Indication: MULTIPLE MYELOMA
     Dosage: 20 MILLIGRAM
     Route: 065
     Dates: start: 20110101
  2. REVLIMID [Suspect]
     Indication: MULTIPLE MYELOMA
     Dosage: 10 MILLIGRAM
     Route: 048
     Dates: start: 20110207
  3. IMDUR [Concomitant]
     Indication: CORONARY ARTERY DISEASE
     Dosage: 15 MILLIGRAM
     Route: 065
     Dates: start: 20080101
  4. PLAVIX [Concomitant]
     Indication: STENT PLACEMENT
     Dosage: 75 MILLIGRAM
     Route: 065
     Dates: start: 20060101
  5. PRILOSEC [Concomitant]
     Dosage: 40 MILLIGRAM
     Route: 065
     Dates: start: 20110101

REACTIONS (2)
  - CHEST PAIN [None]
  - HAEMORRHOIDS [None]
